FAERS Safety Report 21033668 (Version 2)
Quarter: 2022Q3

REPORT INFORMATION
  Report Type: Spontaneous
  Country: US (occurrence: US)
  Receive Date: 20220701
  Receipt Date: 20220929
  Transmission Date: 20221026
  Serious: Yes (Other)
  Sender: FDA-Public Use
  Company Number: US-JNJFOC-20220656261

PATIENT
  Age: 78 Year
  Sex: Female
  Weight: 92.99 kg

DRUGS (3)
  1. REMICADE [Suspect]
     Active Substance: INFLIXIMAB
     Indication: Ankylosing spondylitis
     Dosage: 450 (UNITS UNSPECIFIED)
     Route: 041
     Dates: start: 202112
  2. DICLOFENAC [Suspect]
     Active Substance: DICLOFENAC
     Indication: Fibromyalgia
     Route: 065
  3. MISOPROSTOL [Suspect]
     Active Substance: MISOPROSTOL
     Indication: Fibromyalgia
     Route: 065

REACTIONS (1)
  - Ankylosing spondylitis [Recovering/Resolving]
